FAERS Safety Report 11355723 (Version 1)
Quarter: 2015Q3

REPORT INFORMATION
  Report Type: Report from Study
  Country: US (occurrence: US)
  Receive Date: 20150807
  Receipt Date: 20150807
  Transmission Date: 20151125
  Serious: No
  Sender: FDA-Public Use
  Company Number: US-ABBVIE-15P-163-1427570-00

PATIENT
  Sex: Male
  Weight: 98.97 kg

DRUGS (1)
  1. VIEKIRA PAK [Suspect]
     Active Substance: DASABUVIR\OMBITASVIR\PARITAPREVIR\RITONAVIR
     Indication: HEPATITIS C
     Dosage: TAKE AS DIRECTED, 2 PINK WITH 1 BEIGE IN AM AND 1 BEIGE IN PM
     Route: 048
     Dates: start: 20150609

REACTIONS (7)
  - Dizziness [Unknown]
  - Headache [Unknown]
  - Fatigue [Unknown]
  - Disturbance in attention [Unknown]
  - Memory impairment [Unknown]
  - Balance disorder [Unknown]
  - Lacrimation increased [Unknown]
